FAERS Safety Report 4653576-3 (Version None)
Quarter: 2005Q2

REPORT INFORMATION
  Report Type: 
  Country: None (occurrence: None)
  Receive Date: 20050404
  Receipt Date: 20041111
  Transmission Date: 20051028
  Serious: No
  Sender: FDA-Public Use
  Company Number: USA041183860

PATIENT
  Age: 63 Year
  Sex: Female
  Weight: 73 kg

DRUGS (12)
  1. CYMBALTA [Suspect]
     Indication: FIBROMYALGIA
     Dosage: 30 MG AT BEDTIME
     Dates: start: 20041106
  2. CYMBALTA [Suspect]
     Indication: PAIN
     Dosage: 30 MG AT BEDTIME
     Dates: start: 20041106
  3. AMBIEN [Concomitant]
  4. INDERAL LA [Concomitant]
  5. LOTREL [Concomitant]
  6. TRILEPTAL [Concomitant]
  7. REMERON (MIRTAZAPINE ORIFARM) [Concomitant]
  8. TOPROL-XL [Concomitant]
  9. GUAIFENESIN (GUAIFENESIN L.A.) [Concomitant]
  10. HYDROCHLOROTHIAZIDE [Concomitant]
  11. MULTI-VITAMIN [Concomitant]
  12. PSYLLIUM [Concomitant]

REACTIONS (5)
  - ABDOMINAL PAIN UPPER [None]
  - COLD SWEAT [None]
  - FEELING COLD [None]
  - NAUSEA [None]
  - STOMACH DISCOMFORT [None]
